FAERS Safety Report 8557048-5 (Version None)
Quarter: 2012Q3

REPORT INFORMATION
  Report Type: 
  Country: None (occurrence: None)
  Receive Date: 20120801
  Receipt Date: 20120724
  Transmission Date: 20120928
  Serious: Yes (Other)
  Sender: FDA-Public Use
  Company Number: GR-ROCHE-1086183

PATIENT
  Age: 61 Year
  Sex: Female

DRUGS (3)
  1. HERCEPTIN [Suspect]
     Indication: BREAST CANCER
     Dosage: UNIT DOSE: 6MG/KG
     Dates: start: 20100801, end: 20120615
  2. CARBOPLATIN [Concomitant]
     Indication: BREAST CANCER
     Dosage: UNIT DOSE: 250MG/M2. DURATION: 6 COURSES
     Dates: start: 20100801, end: 20101101
  3. PACLITAXEL [Concomitant]
     Indication: BREAST CANCER
     Dosage: UNIT DOSE: 150MG/M2. DURATION: 6 COURSES
     Dates: start: 20100801, end: 20101101

REACTIONS (3)
  - BREAST CANCER RECURRENT [None]
  - PLEURAL EFFUSION [None]
  - ATELECTASIS [None]
